FAERS Safety Report 16004068 (Version 2)
Quarter: 2019Q1

REPORT INFORMATION
  Report Type: Spontaneous
  Country: GB (occurrence: GB)
  Receive Date: 20190225
  Receipt Date: 20190226
  Transmission Date: 20190418
  Serious: Yes (Other)
  Sender: FDA-Public Use
  Company Number: GB-ACCORD-108658

PATIENT
  Age: 65 Year
  Sex: Female
  Weight: 61 kg

DRUGS (3)
  1. ATORVASTATIN/ATORVASTATIN CALCIUM [Suspect]
     Active Substance: ATORVASTATIN CALCIUM
     Indication: PRODUCT USED FOR UNKNOWN INDICATION
     Dates: start: 20170424
  2. CARVEDILOL/CARVEDILOL HYDROCHLODRIDE [Concomitant]
     Dates: start: 20180720
  3. XARELTO [Concomitant]
     Active Substance: RIVAROXABAN
     Dates: start: 20161113

REACTIONS (1)
  - Hepatitis E [Recovered/Resolved]

NARRATIVE: CASE EVENT DATE: 20170930
